FAERS Safety Report 13585236 (Version 5)
Quarter: 2018Q2

REPORT INFORMATION
  Report Type: Report from Study
  Country: US (occurrence: CA)
  Receive Date: 20170526
  Receipt Date: 20180402
  Transmission Date: 20180711
  Serious: Yes (Other)
  Sender: FDA-Public Use
  Company Number: US-SUNOVION-2017SUN002225

PATIENT
  Age: 74 Year
  Sex: Female

DRUGS (7)
  1. XOLAIR [Suspect]
     Active Substance: OMALIZUMAB
     Dosage: UNK; REGIMEN #2
     Route: 058
     Dates: start: 20170517
  2. SYMBICORT [Concomitant]
     Active Substance: BUDESONIDE\FORMOTEROL FUMARATE DIHYDRATE
     Dosage: 200/6 UG
     Dates: start: 201408
  3. VENTOLIN [Concomitant]
     Active Substance: ALBUTEROL SULFATE
     Dosage: 100 UG
     Dates: start: 201502
  4. GLYCOPYRROLATE. [Suspect]
     Active Substance: GLYCOPYRROLATE
     Dosage: 1 DF (50 UG), UNK; REGIMEN #2
     Route: 055
     Dates: start: 201502
  5. GLYCOPYRROLATE. [Suspect]
     Active Substance: GLYCOPYRROLATE
     Indication: ASTHMA
     Dosage: UNK, QD
     Route: 055
     Dates: start: 2014
  6. ALVESCO [Concomitant]
     Active Substance: CICLESONIDE
     Dosage: 200 UG
     Dates: start: 201408
  7. XOLAIR [Suspect]
     Active Substance: OMALIZUMAB
     Indication: ASTHMA
     Dosage: 150 MG, EVERY 4 WEEKS
     Route: 058
     Dates: start: 20150519

REACTIONS (18)
  - Chest pain [Unknown]
  - Angina pectoris [Unknown]
  - Arthralgia [Recovered/Resolved]
  - Product use in unapproved indication [Unknown]
  - Dizziness [Unknown]
  - Discomfort [Recovered/Resolved]
  - Sputum retention [Unknown]
  - Vision blurred [Unknown]
  - Injection site bruising [Recovered/Resolved]
  - Dyspnoea exertional [Unknown]
  - Lower respiratory tract congestion [Unknown]
  - Chest discomfort [Unknown]
  - Arthritis [Unknown]
  - Cough [Unknown]
  - Restlessness [Recovering/Resolving]
  - Dyspnoea [Recovering/Resolving]
  - Blood pressure systolic decreased [Unknown]
  - Infection [Recovered/Resolved]

NARRATIVE: CASE EVENT DATE: 20150519
